FAERS Safety Report 15759868 (Version 3)
Quarter: 2019Q1

REPORT INFORMATION
  Report Type: Spontaneous
  Country: JP (occurrence: JP)
  Receive Date: 20181226
  Receipt Date: 20190207
  Transmission Date: 20190417
  Serious: Yes (Other)
  Sender: FDA-Public Use
  Company Number: JP-ROCHE-2235988

PATIENT
  Age: 56 Year
  Sex: Female

DRUGS (4)
  1. KALLIDINOGENASE [Concomitant]
     Active Substance: KALLIDINOGENASE
     Indication: RETINAL VEIN OCCLUSION
     Dosage: 1 DF, TID
     Route: 048
     Dates: start: 20181126
  2. VEGAMOX [Concomitant]
     Active Substance: MOXIFLOXACIN HYDROCHLORIDE
     Indication: PRODUCT USED FOR UNKNOWN INDICATION
     Dosage: UNK
     Route: 065
  3. LUCENTIS [Suspect]
     Active Substance: RANIBIZUMAB
     Indication: RETINAL VEIN OCCLUSION
     Dosage: 10 MG/ML
     Route: 031
     Dates: start: 20181217, end: 20181217
  4. CARBAZOCHROME [Concomitant]
     Active Substance: CARBAZOCHROME
     Indication: RETINAL VEIN OCCLUSION
     Dosage: 1 DF, TID
     Route: 048
     Dates: start: 20181126

REACTIONS (5)
  - Hyphaema [Recovered/Resolved]
  - Intraocular pressure increased [Unknown]
  - Eye inflammation [Unknown]
  - Ocular hypertension [Recovered/Resolved]
  - Visual acuity reduced [Unknown]

NARRATIVE: CASE EVENT DATE: 20181217
